FAERS Safety Report 20834280 (Version 1)
Quarter: 2022Q2

REPORT INFORMATION
  Report Type: Spontaneous
  Country: US (occurrence: None)
  Receive Date: 20220513
  Receipt Date: 20220513
  Transmission Date: 20220721
  Serious: No
  Sender: FDA-Public Use
  Company Number: None

PATIENT
  Sex: Male

DRUGS (9)
  1. HUMIRA [Suspect]
     Active Substance: ADALIMUMAB
     Indication: Crohn^s disease
     Dosage: FREQUENCY : EVERY OTHER WEEK;?
     Route: 058
     Dates: start: 20211102
  2. VALACYCLOVIR HYDROCHLORIDE [Concomitant]
     Active Substance: VALACYCLOVIR HYDROCHLORIDE
  3. VENTOLIN I-FA [Concomitant]
  4. XANAX [Concomitant]
     Active Substance: ALPRAZOLAM
  5. CVS CLOTRIMAZOLE [Concomitant]
  6. CEPHALEXIN [Concomitant]
     Active Substance: CEPHALEXIN
  7. LVSIN/SL [Concomitant]
  8. ACYCLOVIR [Concomitant]
     Active Substance: ACYCLOVIR
  9. WIXELA INHUB [Concomitant]
     Active Substance: FLUTICASONE PROPIONATE\SALMETEROL XINAFOATE

REACTIONS (2)
  - Drug ineffective [None]
  - Crohn^s disease [None]
